FAERS Safety Report 22606593 (Version 1)
Quarter: 2023Q2

REPORT INFORMATION
  Report Type: Spontaneous
  Country: US (occurrence: None)
  Receive Date: 20230608
  Receipt Date: 20230608
  Transmission Date: 20230722
  Serious: Yes (Hospitalization)
  Sender: FDA-Public Use
  Company Number: None

PATIENT
  Age: 76 Year
  Sex: Male
  Weight: 71.94 kg

DRUGS (14)
  1. DURVALUMAB [Suspect]
     Active Substance: DURVALUMAB
  2. RADIATION THERAPY [Concomitant]
     Active Substance: RADIATION THERAPY
  3. ALLOPURINOL [Concomitant]
     Active Substance: ALLOPURINOL
  4. ATORVASTATIN [Concomitant]
     Active Substance: ATORVASTATIN
  5. Carvediol 12.5 mg tablet [Concomitant]
  6. Empagliflozin 25 mg tablet [Concomitant]
  7. LISINOPRIL [Concomitant]
     Active Substance: LISINOPRIL
  8. Metformin 1000 mg tablet [Concomitant]
  9. Simvastatin 40 mg tablet [Concomitant]
  10. Novolog Flexpen 100 units/mL 3 mL pen [Concomitant]
  11. Calcium polycarbophil 625 mg tablet [Concomitant]
  12. Cyanocobalamin 1000 mcg tablet [Concomitant]
  13. OMEPRAZOLE [Concomitant]
     Active Substance: OMEPRAZOLE
  14. RADIATION THERAPY [Suspect]
     Active Substance: RADIATION THERAPY

REACTIONS (7)
  - Speech disorder [None]
  - Intracranial mass [None]
  - Vasogenic cerebral oedema [None]
  - Metastases to central nervous system [None]
  - Therapy cessation [None]
  - Lung neoplasm malignant [None]
  - Malignant neoplasm progression [None]

NARRATIVE: CASE EVENT DATE: 20230522
